FAERS Safety Report 23811596 (Version 1)
Quarter: 2024Q2

REPORT INFORMATION
  Report Type: Spontaneous
  Country: US (occurrence: US)
  Receive Date: 20240503
  Receipt Date: 20240503
  Transmission Date: 20240716
  Serious: Yes (Death, Hospitalization, Other)
  Sender: FDA-Public Use
  Company Number: US-AMGEN-USASP2024083016

PATIENT

DRUGS (7)
  1. AVACOPAN [Suspect]
     Active Substance: AVACOPAN
     Indication: Anti-neutrophil cytoplasmic antibody positive vasculitis
     Dosage: 30 MILLIGRAM, QD
     Route: 065
  2. RITUXIMAB [Suspect]
     Active Substance: RITUXIMAB
     Indication: Anti-neutrophil cytoplasmic antibody positive vasculitis
     Dosage: 1000 MILLIGRAM (2 WEEKS)
     Route: 042
  3. RITUXIMAB [Suspect]
     Active Substance: RITUXIMAB
     Dosage: 375 MILLIGRAM/M^2 (FOR 4 WEEKS)
     Route: 042
  4. RITUXIMAB [Suspect]
     Active Substance: RITUXIMAB
     Dosage: (500 MG OR 1000 MG EVERY 4-6 MONTHS)
     Route: 042
  5. CYCLOPHOSPHAMIDE [Concomitant]
     Active Substance: CYCLOPHOSPHAMIDE
     Indication: Anti-neutrophil cytoplasmic antibody positive vasculitis
     Dosage: UNK
     Route: 042
  6. CYCLOPHOSPHAMIDE [Concomitant]
     Active Substance: CYCLOPHOSPHAMIDE
     Dosage: UNK
     Route: 048
  7. AZATHIOPRINE [Concomitant]
     Active Substance: AZATHIOPRINE
     Indication: Anti-neutrophil cytoplasmic antibody positive vasculitis
     Dosage: UNK
     Route: 065

REACTIONS (19)
  - Ovarian cancer [Fatal]
  - COVID-19 [Fatal]
  - Anti-neutrophil cytoplasmic antibody positive vasculitis [Unknown]
  - Infection [Unknown]
  - End stage renal disease [Unknown]
  - Renal impairment [Unknown]
  - Neuropathy peripheral [Unknown]
  - Neoplasm malignant [Unknown]
  - Haematuria [Unknown]
  - Proteinuria [Unknown]
  - Hypertransaminasaemia [Unknown]
  - Gastrointestinal disorder [Unknown]
  - Sinus disorder [Unknown]
  - Extremity necrosis [Unknown]
  - Chest pain [Unknown]
  - Dyspnoea [Unknown]
  - Pruritus [Unknown]
  - Off label use [Unknown]
  - Drug effective for unapproved indication [Unknown]
